FAERS Safety Report 5912680-X (Version None)
Quarter: 2008Q4

REPORT INFORMATION
  Report Type: 
  Country: None (occurrence: None)
  Receive Date: 20081008
  Receipt Date: 20081001
  Transmission Date: 20090506
  Serious: No
  Sender: FDA-Public Use
  Company Number: US-B.I. PHARMACEUTICALS,INC./RIDGEFIELD-2008-BP-11193BP

PATIENT
  Sex: Male

DRUGS (6)
  1. COMBIVENT [Suspect]
     Indication: DYSPNOEA
     Route: 055
     Dates: start: 20060101
  2. COMBIVENT [Suspect]
     Indication: ASTHMA
  3. WARFARIN SODIUM [Concomitant]
     Indication: HEART VALVE REPLACEMENT
  4. HYDROMORPHONE HCL [Concomitant]
     Indication: BACK PAIN
  5. OXYCONTIN [Concomitant]
     Indication: BACK PAIN
  6. DIAZEPAM [Concomitant]
     Indication: BACK PAIN

REACTIONS (4)
  - BURNING SENSATION [None]
  - COUGH [None]
  - DRUG INEFFECTIVE [None]
  - THROAT IRRITATION [None]
